FAERS Safety Report 4690397-X (Version None)
Quarter: 2005Q2

REPORT INFORMATION
  Report Type: 
  Country: None (occurrence: None)
  Receive Date: 20050615
  Receipt Date: 20050603
  Transmission Date: 20051028
  Serious: Yes (Hospitalization)
  Sender: FDA-Public Use
  Company Number: US-MERCK-0506USA01000

PATIENT
  Age: 53 Year
  Sex: Female
  Weight: 61 kg

DRUGS (13)
  1. VIOXX [Suspect]
     Indication: ARTHRITIS
     Route: 048
     Dates: start: 20010101, end: 20030101
  2. VIOXX [Suspect]
     Indication: PAIN
     Route: 048
     Dates: start: 20010101, end: 20030101
  3. ZYRTEC [Concomitant]
     Route: 065
  4. BACTRIM [Concomitant]
     Route: 065
  5. DILANTIN [Concomitant]
     Route: 065
  6. TYLENOL [Concomitant]
     Route: 065
  7. ADVIL [Concomitant]
     Route: 065
  8. HYDROCORTISONE [Concomitant]
     Route: 065
  9. MOTRIN [Concomitant]
     Route: 065
  10. PREMARIN [Concomitant]
     Route: 065
     Dates: start: 20020101
  11. INSULIN [Concomitant]
     Indication: DIABETES MELLITUS
     Route: 065
  12. VICODIN [Concomitant]
     Route: 065
     Dates: start: 20020101
  13. AMITRIPTYLINE HYDROCHLORIDE [Concomitant]
     Route: 065
     Dates: start: 20030101

REACTIONS (14)
  - AORTIC ATHEROSCLEROSIS [None]
  - BLOOD PRESSURE FLUCTUATION [None]
  - CEREBROVASCULAR ACCIDENT [None]
  - DEEP VEIN THROMBOSIS [None]
  - DEHYDRATION [None]
  - EMOTIONAL DISTRESS [None]
  - FEELING OF BODY TEMPERATURE CHANGE [None]
  - HEADACHE [None]
  - HYPERHIDROSIS [None]
  - PHOTOPHOBIA [None]
  - SPINAL OSTEOARTHRITIS [None]
  - VISION BLURRED [None]
  - VITREOUS FLOATERS [None]
  - VOMITING [None]
